FAERS Safety Report 4446099-8 (Version None)
Quarter: 2004Q3

REPORT INFORMATION
  Report Type: 
  Country: None (occurrence: None)
  Receive Date: 20040910
  Receipt Date: 20040831
  Transmission Date: 20050211
  Serious: Yes (Death)
  Sender: FDA-Public Use
  Company Number: US-JNJFOC-20040706685

PATIENT
  Age: 73 Year
  Sex: Female

DRUGS (24)
  1. DURAGESIC [Suspect]
     Route: 062
  2. DURAGESIC [Suspect]
     Route: 062
  3. PEPCID [Concomitant]
     Route: 049
  4. HEPARIN [Concomitant]
     Dosage: 10,000 UNITS TWICE DAILY
  5. NYSTATIN [Concomitant]
     Route: 049
  6. ZESTRIL [Concomitant]
     Route: 049
  7. ESTRACE [Concomitant]
     Route: 049
  8. PROZAC [Concomitant]
     Route: 049
  9. ELAVIL [Concomitant]
     Dosage: NIGHTLY, ORAL
     Route: 049
  10. SYNTHROID [Concomitant]
     Route: 049
  11. KLONOPIN [Concomitant]
     Dosage: 1 MG EVERY MORNING
     Route: 049
  12. LOPRESSOR [Concomitant]
     Route: 049
  13. ASPIRIN [Concomitant]
     Route: 049
  14. ZYVOX [Concomitant]
     Route: 049
  15. LEVAQUIN [Concomitant]
     Route: 049
  16. INSULIN [Concomitant]
     Dosage: 75/25, 22 UNITS TWICE DAILY
     Route: 058
  17. NOVOLOG [Concomitant]
     Dosage: SLIDING SCALE NOVOLOG INSULIN
  18. FERGON [Concomitant]
     Route: 049
  19. COLACE [Concomitant]
     Route: 049
  20. ZYPREXA [Concomitant]
     Dosage: 5 MG NIGHTLY
     Route: 049
  21. URECHOLINE [Concomitant]
     Route: 049
  22. MYCELEX [Concomitant]
  23. ACETAMINOPHEN [Concomitant]
     Dosage: AS NEEDED
     Route: 049
  24. LIDOCAINE [Concomitant]
     Dosage: AS NEEDED

REACTIONS (12)
  - HOARSENESS [None]
  - INFECTED SKIN ULCER [None]
  - IRON DEFICIENCY ANAEMIA [None]
  - LEG AMPUTATION [None]
  - MENTAL STATUS CHANGES [None]
  - MOUTH ULCERATION [None]
  - NEUROPATHY [None]
  - ODYNOPHAGIA [None]
  - PHARYNGITIS [None]
  - POST PROCEDURAL COMPLICATION [None]
  - VOCAL CORD POLYP [None]
  - VOCAL CORD THICKENING [None]
